FAERS Safety Report 24526626 (Version 1)
Quarter: 2024Q4

REPORT INFORMATION
  Report Type: Report from Study
  Country: CA (occurrence: CA)
  Receive Date: 20241021
  Receipt Date: 20241021
  Transmission Date: 20250115
  Serious: No
  Sender: ROCHE
  Company Number: CA-ROCHE-3198912

PATIENT
  Age: 78 Year
  Sex: Female

DRUGS (3)
  1. ZELBORAF [Suspect]
     Active Substance: VEMURAFENIB
     Indication: Lung adenocarcinoma stage III
     Dosage: SUSPENDED
     Route: 048
     Dates: start: 20220927, end: 2022
  2. ZELBORAF [Suspect]
     Active Substance: VEMURAFENIB
     Route: 048
     Dates: start: 2022
  3. TECENTRIQ [Suspect]
     Active Substance: ATEZOLIZUMAB
     Indication: Lung adenocarcinoma stage III
     Route: 041
     Dates: start: 20220112

REACTIONS (9)
  - Rash [Unknown]
  - Arthralgia [Unknown]
  - Fatigue [Unknown]
  - Off label use [Unknown]
  - Erythema [Unknown]
  - Somnolence [Unknown]
  - Memory impairment [Unknown]
  - Aphasia [Unknown]
  - Scab [Unknown]

NARRATIVE: CASE EVENT DATE: 20221001
